FAERS Safety Report 7647167-X (Version None)
Quarter: 2011Q3

REPORT INFORMATION
  Report Type: 
  Country: None (occurrence: None)
  Receive Date: 20110729
  Receipt Date: 20110729
  Transmission Date: 20111222
  Serious: No
  Sender: FDA-Public Use
  Company Number: None

PATIENT
  Age: 68 Year
  Sex: Male
  Weight: 95.5 kg

DRUGS (1)
  1. MICRONASE [Suspect]
     Indication: DIABETES MELLITUS
     Dosage: ONE TABLET BY MOUTH DAILY
     Route: 048
     Dates: start: 20110705, end: 20110717

REACTIONS (3)
  - SENSATION OF PRESSURE [None]
  - ABDOMINAL DISTENSION [None]
  - WEIGHT INCREASED [None]
